FAERS Safety Report 4920658-8 (Version None)
Quarter: 2006Q1

REPORT INFORMATION
  Report Type: 
  Country: None (occurrence: None)
  Receive Date: 20060223
  Receipt Date: 20060201
  Transmission Date: 20060701
  Serious: Yes (Hospitalization)
  Sender: FDA-Public Use
  Company Number: PHEH2006US01673

PATIENT
  Age: 69 Year
  Sex: Female

DRUGS (9)
  1. ZELNORM [Suspect]
     Indication: IMPAIRED GASTRIC EMPTYING
     Dosage: 2 MG, QD
     Route: 048
     Dates: start: 20051129, end: 20051211
  2. PLAVIX [Concomitant]
  3. ACETYLSALICYLIC ACID SRT [Concomitant]
  4. AVAPRO [Concomitant]
  5. NEXIUM [Concomitant]
     Indication: GASTROOESOPHAGEAL REFLUX DISEASE
     Dosage: 40 MG, QD
     Dates: start: 20020101
  6. LIPITOR [Concomitant]
     Dosage: 10 MG, QD
  7. DITROPAN XL [Concomitant]
  8. TOPROL-XL [Concomitant]
  9. PREMARIN [Concomitant]

REACTIONS (16)
  - ABDOMINAL PAIN [None]
  - ALANINE AMINOTRANSFERASE INCREASED [None]
  - ASPARTATE AMINOTRANSFERASE INCREASED [None]
  - ASTHENIA [None]
  - CHILLS [None]
  - COLITIS ULCERATIVE [None]
  - DEHYDRATION [None]
  - DIARRHOEA [None]
  - DIZZINESS [None]
  - GASTRITIS EROSIVE [None]
  - HAEMATOCHEZIA [None]
  - HEPATIC ENZYME INCREASED [None]
  - HYPERHIDROSIS [None]
  - NAUSEA [None]
  - PYREXIA [None]
  - VOMITING [None]
